FAERS Safety Report 8128112-X (Version None)
Quarter: 2012Q1

REPORT INFORMATION
  Report Type: 
  Country: None (occurrence: None)
  Receive Date: 20120210
  Receipt Date: 20120201
  Transmission Date: 20120608
  Serious: No
  Sender: FDA-Public Use
  Company Number: US-BAYER-2012-013170

PATIENT
  Age: 39 Year
  Sex: Female
  Weight: 38 kg

DRUGS (1)
  1. ALEVE (CAPLET) [Suspect]
     Indication: ARTHRITIS
     Dosage: 1 TABLET EVERY 8 HOURS
     Route: 048
     Dates: start: 20111116, end: 20120125

REACTIONS (1)
  - ARTHRITIS [None]
